FAERS Safety Report 18305462 (Version 2)
Quarter: 2022Q1

REPORT INFORMATION
  Report Type: Spontaneous
  Country: US (occurrence: US)
  Receive Date: 20200924
  Receipt Date: 20220224
  Transmission Date: 20220423
  Serious: Yes (Other)
  Sender: FDA-Public Use
  Company Number: US-SAARTEMIS-SAC202009210364

PATIENT
  Age: 52 Year
  Sex: Male

DRUGS (1)
  1. ZANTAC [Suspect]
     Active Substance: RANITIDINE HYDROCHLORIDE
     Indication: Gastric ulcer
     Dosage: 150 MG
     Route: 065
     Dates: start: 199512, end: 201201

REACTIONS (1)
  - Colorectal cancer stage III [Unknown]

NARRATIVE: CASE EVENT DATE: 20190801
